FAERS Safety Report 13951255 (Version 1)
Quarter: 2017Q3

REPORT INFORMATION
  Report Type: Spontaneous
  Country: US (occurrence: US)
  Receive Date: 20170908
  Receipt Date: 20170908
  Transmission Date: 20171128
  Serious: Yes (Life-Threatening, Hospitalization)
  Sender: FDA-Public Use
  Company Number: US-ROCHE-1202321

PATIENT
  Age: 66 Year
  Sex: Male
  Weight: 68.1 kg

DRUGS (9)
  1. DOXORUBICIN [Concomitant]
     Active Substance: DOXORUBICIN
  2. ALOXI [Concomitant]
     Active Substance: PALONOSETRON HYDROCHLORIDE
  3. PEPCID [Concomitant]
     Active Substance: FAMOTIDINE
  4. DECADRON [Concomitant]
     Active Substance: DEXAMETHASONE
  5. EMEND [Concomitant]
     Active Substance: APREPITANT
  6. PREDNISONE. [Concomitant]
     Active Substance: PREDNISONE
  7. VINCRISTINE [Concomitant]
     Active Substance: VINCRISTINE
  8. RITUXAN [Suspect]
     Active Substance: RITUXIMAB
     Indication: DIFFUSE LARGE B-CELL LYMPHOMA
     Route: 042
     Dates: start: 20121202, end: 20130112
  9. CYCLOPHOSPHAMIDE. [Concomitant]
     Active Substance: CYCLOPHOSPHAMIDE

REACTIONS (2)
  - Respiratory distress [Recovered/Resolved]
  - Hypersensitivity [Unknown]

NARRATIVE: CASE EVENT DATE: 20121210
